FAERS Safety Report 9802740 (Version 2)
Quarter: 2014Q1

REPORT INFORMATION
  Report Type: Spontaneous
  Country: FR (occurrence: FR)
  Receive Date: 20140108
  Receipt Date: 20140108
  Transmission Date: 20141002
  Serious: Yes (Other)
  Sender: FDA-Public Use
  Company Number: FR-009507513-2012SP014866

PATIENT
  Age: 23 Year
  Sex: Female

DRUGS (1)
  1. NUVARING 120/15 MICROGRAMS/24 HOURS VAGINAL DELIVERY SYSTEM [Suspect]
     Indication: CONTRACEPTION
     Dosage: UNK
     Dates: start: 201110, end: 201112

REACTIONS (9)
  - Drug-induced liver injury [Recovered/Resolved]
  - Blood triglycerides increased [Unknown]
  - Low density lipoprotein increased [Unknown]
  - Polycythaemia [Recovering/Resolving]
  - Transaminases increased [Recovered/Resolved]
  - Migraine [Recovered/Resolved]
  - Weight decreased [Unknown]
  - Vomiting [Not Recovered/Not Resolved]
  - Fatigue [Not Recovered/Not Resolved]
